FAERS Safety Report 4788903-X (Version None)
Quarter: 2005Q4

REPORT INFORMATION
  Report Type: 
  Country: None (occurrence: None)
  Receive Date: 20051004
  Receipt Date: 20050921
  Transmission Date: 20060501
  Serious: Yes (Disabling, Other)
  Sender: FDA-Public Use
  Company Number: JP_050907478

PATIENT
  Age: 54 Year
  Sex: Male
  Weight: 80 kg

DRUGS (11)
  1. GEMZAR [Suspect]
     Indication: NON-SMALL CELL LUNG CANCER
     Dosage: 1400 MG OTHER
     Dates: start: 20050713, end: 20050817
  2. PARAPLATIN [Concomitant]
  3. KYTRILL  /01178102/ (GRANISETRON HYDROCHLORIDE) [Concomitant]
  4. FAMOTIDINE [Concomitant]
  5. NIVADIL ^FUJISAWA^ (NILVADIPINE) [Concomitant]
  6. DOXAZOSIN MESYLATE [Concomitant]
  7. LOXONIN (LOXOPROFEN SODIUM) [Concomitant]
  8. SOSEGON (PENTAZOCINE) [Concomitant]
  9. OXYCONTIN [Concomitant]
  10. NOVAMIN (PROCHLORPERAZINE) [Concomitant]
  11. NAUZELIN (DOMPERIDONE) [Concomitant]

REACTIONS (9)
  - CONSTIPATION [None]
  - GASTRITIS [None]
  - OESOPHAGITIS [None]
  - PLATELET COUNT DECREASED [None]
  - RETINAL ARTERY OCCLUSION [None]
  - RETINAL EXUDATES [None]
  - RETINAL HAEMORRHAGE [None]
  - RETINAL VASCULAR DISORDER [None]
  - RETINOPATHY [None]
